FAERS Safety Report 24045956 (Version 1)
Quarter: 2024Q3

REPORT INFORMATION
  Report Type: Spontaneous
  Country: IT (occurrence: IT)
  Receive Date: 20240703
  Receipt Date: 20240703
  Transmission Date: 20241016
  Serious: Yes (Other)
  Sender: TEVA
  Company Number: None

PATIENT
  Age: 54 Year
  Sex: Male
  Weight: 82 kg

DRUGS (3)
  1. FLUOROURACIL [Suspect]
     Active Substance: FLUOROURACIL
     Indication: Colon cancer
     Dosage: 4150MG IN CONTINUOUS INFUSION FOR 46H, ?5-FLUOROURACILE
     Route: 042
     Dates: start: 20240521, end: 20240522
  2. OXALIPLATIN [Suspect]
     Active Substance: OXALIPLATIN
     Indication: Colon cancer
     Dosage: 120MG EVERY 21 DAYS
     Route: 042
     Dates: start: 20240521, end: 20240521
  3. ERBITUX [Suspect]
     Active Substance: CETUXIMAB
     Indication: Colon cancer
     Dosage: 990MG EVERY 21 DAYS
     Route: 042
     Dates: start: 20240521, end: 20240521

REACTIONS (1)
  - Thrombocytopenia [Not Recovered/Not Resolved]

NARRATIVE: CASE EVENT DATE: 20240604
